FAERS Safety Report 15601699 (Version 1)
Quarter: 2018Q4

REPORT INFORMATION
  Report Type: Spontaneous
  Country: IT (occurrence: IT)
  Receive Date: 20181109
  Receipt Date: 20181109
  Transmission Date: 20190205
  Serious: Yes (Death)
  Sender: FDA-Public Use
  Company Number: IT-LANNETT COMPANY, INC.-IT-2018LAN001283

PATIENT
  Age: 57 Year
  Sex: Female

DRUGS (3)
  1. TALC [Concomitant]
     Active Substance: TALC
     Indication: PRODUCT USED FOR UNKNOWN INDICATION
     Dosage: UNK
  2. MORPHINE SULFATE. [Suspect]
     Active Substance: MORPHINE SULFATE
     Indication: ANALGESIC THERAPY
     Dosage: UNK
     Route: 065
  3. OXAZEPAM. [Suspect]
     Active Substance: OXAZEPAM
     Indication: ANALGESIC THERAPY
     Dosage: UNK

REACTIONS (2)
  - Cardiac failure acute [Fatal]
  - Pulmonary hypertension [Fatal]
